FAERS Safety Report 7788634-8 (Version None)
Quarter: 2011Q3

REPORT INFORMATION
  Report Type: 
  Country: None (occurrence: None)
  Receive Date: 20110930
  Receipt Date: 20110920
  Transmission Date: 20111222
  Serious: Yes (Hospitalization, Other)
  Sender: FDA-Public Use
  Company Number: JP-BRISTOL-MYERS SQUIBB COMPANY-16108078

PATIENT
  Age: 47 Year
  Sex: Female

DRUGS (4)
  1. ABILIFY [Suspect]
     Indication: SCHIZOPHRENIA
     Dosage: INCREASED TO 30MG
     Route: 048
  2. VALPROATE SODIUM [Concomitant]
     Dosage: INCREASED TO 1200MG
  3. RISPERIDONE [Concomitant]
     Indication: SCHIZOPHRENIA
  4. OLANZAPINE [Concomitant]

REACTIONS (4)
  - LARGE INTESTINE PERFORATION [None]
  - PSYCHIATRIC SYMPTOM [None]
  - ILEUS PARALYTIC [None]
  - APPENDICEAL ABSCESS [None]
